FAERS Safety Report 5911807-3 (Version None)
Quarter: 2008Q4

REPORT INFORMATION
  Report Type: 
  Country: None (occurrence: None)
  Receive Date: 20081008
  Receipt Date: 20080924
  Transmission Date: 20090506
  Serious: Yes (Death, Other)
  Sender: FDA-Public Use
  Company Number: US-BAYER-200827589GPV

PATIENT

DRUGS (2)
  1. CAMPATH [Suspect]
     Indication: LIVER TRANSPLANT
  2. TACROLIMUS [Suspect]
     Indication: LIVER TRANSPLANT

REACTIONS (13)
  - CYTOMEGALOVIRUS INFECTION [None]
  - DIABETIC NEPHROPATHY [None]
  - FAILURE TO THRIVE [None]
  - HEPATITIS B [None]
  - HERPES SIMPLEX [None]
  - HERPES ZOSTER [None]
  - KAPOSI'S SARCOMA [None]
  - LYMPHOMA [None]
  - NEPHROTIC SYNDROME [None]
  - OPPORTUNISTIC INFECTION [None]
  - PNEUMONIA [None]
  - SEPSIS [None]
  - SKIN CANCER [None]
